FAERS Safety Report 18759368 (Version 1)
Quarter: 2021Q1

REPORT INFORMATION
  Report Type: Spontaneous
  Country: US (occurrence: US)
  Receive Date: 20210120
  Receipt Date: 20210120
  Transmission Date: 20210419
  Serious: Yes (Hospitalization)
  Sender: FDA-Public Use
  Company Number: US-APOTEX-2021AP001164

PATIENT
  Age: 69 Year
  Sex: Female

DRUGS (2)
  1. DULOXETINE. [Suspect]
     Active Substance: DULOXETINE
     Indication: DEPRESSION
     Dosage: UNK
     Route: 065
  2. DULOXETINE. [Suspect]
     Active Substance: DULOXETINE
     Dosage: 60 MILLIGRAM, QD
     Route: 065

REACTIONS (5)
  - Cyanosis [Recovered/Resolved]
  - Ischaemia [Unknown]
  - Atrial tachycardia [Unknown]
  - Vasoconstriction [Unknown]
  - Hypertension [Unknown]
